FAERS Safety Report 16956904 (Version 1)
Quarter: 2019Q4

REPORT INFORMATION
  Report Type: Spontaneous
  Country: US (occurrence: US)
  Receive Date: 20191023
  Receipt Date: 20191023
  Transmission Date: 20200122
  Serious: Yes (Hospitalization, Disabling)
  Sender: FDA-Public Use
  Company Number: None

PATIENT
  Age: 41 Year
  Sex: Male
  Weight: 144 kg

DRUGS (1)
  1. ZANTAC 150 MAXIMUM STRENGTH COOL MINT [Suspect]
     Active Substance: RANITIDINE HYDROCHLORIDE
     Dates: start: 20100610, end: 20191001

REACTIONS (2)
  - Cardiac monitoring [None]
  - Dyspepsia [None]

NARRATIVE: CASE EVENT DATE: 20190607
